FAERS Safety Report 7595048-2 (Version None)
Quarter: 2011Q2

REPORT INFORMATION
  Report Type: 
  Country: None (occurrence: None)
  Receive Date: 20110620
  Receipt Date: 20110405
  Transmission Date: 20111010
  Serious: Yes (Hospitalization)
  Sender: FDA-Public Use
  Company Number: UTC-006141

PATIENT
  Age: 67 Year
  Sex: Male

DRUGS (2)
  1. TYVASO [Suspect]
     Indication: PULMONARY HYPERTENSION
     Dosage: INHALATION
     Route: 055
     Dates: start: 20110216
  2. ADCIRCA [Concomitant]

REACTIONS (2)
  - SYNCOPE [None]
  - DECREASED APPETITE [None]
